FAERS Safety Report 8804679 (Version 3)
Quarter: 2012Q4

REPORT INFORMATION
  Report Type: 
  Country: HR (occurrence: HR)
  Receive Date: 20120924
  Receipt Date: 20121214
  Transmission Date: 20130627
  Serious: Yes (Death)
  Sender: FDA-Public Use
  Company Number: HR-ABBOTT-12P-216-0984668-00

PATIENT
  Age: 62 Year
  Sex: Female
  Weight: 62 kg

DRUGS (5)
  1. HUMIRA [Suspect]
     Indication: RHEUMATOID ARTHRITIS
     Route: 058
     Dates: start: 2010, end: 2012
  2. LEFLUNOMIDE [Concomitant]
     Indication: RHEUMATOID ARTHRITIS
     Route: 048
  3. AGLURAB [Concomitant]
     Indication: DIABETES MELLITUS
     Route: 048
  4. LOSARTIC [Concomitant]
     Indication: HYPERTENSION
     Route: 048
  5. GLUCOCORTICOID [Concomitant]
     Indication: PRODUCT USED FOR UNKNOWN INDICATION

REACTIONS (2)
  - Death [Fatal]
  - Cardiac failure [Fatal]
